FAERS Safety Report 11415618 (Version 2)
Quarter: 2015Q3

REPORT INFORMATION
  Report Type: Report from Study
  Country: DE (occurrence: DE)
  Receive Date: 20150825
  Receipt Date: 20150911
  Transmission Date: 20151125
  Serious: Yes (Hospitalization)
  Sender: FDA-Public Use
  Company Number: DE-BIOGENIDEC-2015BI114499

PATIENT
  Age: 34 Year
  Sex: Male
  Weight: 63 kg

DRUGS (3)
  1. FAMPYRA [Concomitant]
     Active Substance: DALFAMPRIDINE
  2. SKID [Concomitant]
  3. TYSABRI [Suspect]
     Active Substance: NATALIZUMAB
     Indication: MULTIPLE SCLEROSIS
     Route: 042
     Dates: start: 20130130

REACTIONS (1)
  - Drug rehabilitation [Recovered/Resolved]

NARRATIVE: CASE EVENT DATE: 20141230
